FAERS Safety Report 5957472-0 (Version None)
Quarter: 2008Q4

REPORT INFORMATION
  Report Type: 
  Country: None (occurrence: None)
  Receive Date: 20081114
  Receipt Date: 20081106
  Transmission Date: 20090506
  Serious: Yes (Hospitalization, Other)
  Sender: FDA-Public Use
  Company Number: 2008SP022637

PATIENT
  Sex: Female

DRUGS (3)
  1. INTEGRILIN [Suspect]
     Indication: ANGIOPLASTY
     Dates: start: 20081031
  2. PLAVIX [Suspect]
     Indication: DRUG USE FOR UNKNOWN INDICATION
     Dosage: 150 MG
  3. ASPIRIN [Suspect]
     Indication: DRUG USE FOR UNKNOWN INDICATION

REACTIONS (5)
  - CHILLS [None]
  - CONVULSION [None]
  - DYSPNOEA [None]
  - HAEMORRHAGE [None]
  - PLATELET COUNT DECREASED [None]
